FAERS Safety Report 6859610-4 (Version None)
Quarter: 2010Q3

REPORT INFORMATION
  Report Type: 
  Country: None (occurrence: None)
  Receive Date: 20100719
  Receipt Date: 20081103
  Transmission Date: 20110219
  Serious: No
  Sender: FDA-Public Use
  Company Number: US-PFIZER INC-2008020872

PATIENT
  Sex: Male
  Weight: 82.7 kg

DRUGS (1)
  1. CHANTIX [Suspect]
     Indication: SMOKING CESSATION THERAPY
     Dates: start: 20080102

REACTIONS (3)
  - DRUG INEFFECTIVE [None]
  - GINGIVAL BLEEDING [None]
  - WEIGHT INCREASED [None]
